FAERS Safety Report 9483797 (Version 2)
Quarter: 2013Q3

REPORT INFORMATION
  Report Type: Spontaneous
  Country: US (occurrence: US)
  Receive Date: 20130828
  Receipt Date: 20130919
  Transmission Date: 20140515
  Serious: Yes (Other)
  Sender: FDA-Public Use
  Company Number: US-PFIZER INC-2013244427

PATIENT
  Sex: Female

DRUGS (1)
  1. ZITHROMAX [Suspect]
     Dosage: UNK

REACTIONS (4)
  - Cerebrovascular accident [Recovered/Resolved with Sequelae]
  - Vision blurred [Unknown]
  - Diplopia [Unknown]
  - Headache [Unknown]
